FAERS Safety Report 5965010-1 (Version None)
Quarter: 2008Q4

REPORT INFORMATION
  Report Type: 
  Country: None (occurrence: None)
  Receive Date: 20081125
  Receipt Date: 20081007
  Transmission Date: 20090506
  Serious: No
  Sender: FDA-Public Use
  Company Number: US-AMGEN-KDL311926

PATIENT
  Sex: Female

DRUGS (2)
  1. ENBREL [Suspect]
     Indication: PSORIASIS
  2. UNSPECIFIED STEROIDS [Concomitant]

REACTIONS (2)
  - ARTHRALGIA [None]
  - NASOPHARYNGITIS [None]
